FAERS Safety Report 5342256-7 (Version None)
Quarter: 2007Q2

REPORT INFORMATION
  Report Type: 
  Country: None (occurrence: None)
  Receive Date: 20070416
  Receipt Date: 20070306
  Transmission Date: 20071010
  Serious: No
  Sender: FDA-Public Use
  Company Number: 2007SP000792

PATIENT
  Age: 59 Year
  Sex: Female
  Weight: 71.6683 kg

DRUGS (2)
  1. LUNESTA [Suspect]
     Indication: INSOMNIA
     Dosage: 3 MG;PRN;ORAL
     Route: 048
     Dates: start: 20070201, end: 20070201
  2. TERBINAFINE [Concomitant]

REACTIONS (9)
  - AGGRESSION [None]
  - AGITATION [None]
  - DEPRESSION [None]
  - FEELING ABNORMAL [None]
  - GLOSSODYNIA [None]
  - IRRITABILITY [None]
  - NON-CARDIAC CHEST PAIN [None]
  - SWOLLEN TONGUE [None]
  - TONGUE DISORDER [None]
